FAERS Safety Report 16476973 (Version 3)
Quarter: 2019Q3

REPORT INFORMATION
  Report Type: Spontaneous
  Country: US (occurrence: US)
  Receive Date: 20190626
  Receipt Date: 20190905
  Transmission Date: 20191004
  Serious: Yes (Other)
  Sender: FDA-Public Use
  Company Number: US-AUROBINDO-AUR-APL-2019-034936

PATIENT

DRUGS (3)
  1. LOSARTAN POTASSIUM TABLETS USP 25MG [Suspect]
     Active Substance: LOSARTAN POTASSIUM
     Indication: HYPERTENSION
     Dosage: UNK, ONE TABLET
     Route: 065
     Dates: start: 201811
  2. LOSARTAN POTASSIUM TABLETS USP 25MG [Suspect]
     Active Substance: LOSARTAN POTASSIUM
     Dosage: UNK, 1.5 TABLETS INSTEAD OF ONE WHEN HIGH BLOOD PRESSURE
     Route: 065
  3. LOSARTAN POTASSIUM TABLETS USP 50MG [Suspect]
     Active Substance: LOSARTAN POTASSIUM
     Indication: HYPERTENSION
     Dosage: 50 MILLIGRAM, TWO TIMES A DAY, GREENISH COLOR, FOOTBALL-SHAPED
     Route: 048
     Dates: start: 201811

REACTIONS (4)
  - Drug ineffective [Recovered/Resolved]
  - Hypertension [Recovered/Resolved]
  - White coat hypertension [Recovered/Resolved]
  - Sleep disorder [Recovered/Resolved]
